FAERS Safety Report 18814266 (Version 1)
Quarter: 2021Q1

REPORT INFORMATION
  Report Type: Spontaneous
  Country: DE (occurrence: DE)
  Receive Date: 20210201
  Receipt Date: 20210201
  Transmission Date: 20210419
  Serious: Yes (Hospitalization)
  Sender: FDA-Public Use
  Company Number: DE-TEVA-2021-DE-1873696

PATIENT
  Age: 27 Year
  Sex: Male

DRUGS (1)
  1. SILDENAFIL. [Suspect]
     Active Substance: SILDENAFIL
     Dosage: INGESTION 30?OCT?2020 AND 31?OCT?2020

REACTIONS (5)
  - Syncope [Unknown]
  - Vision blurred [Unknown]
  - Tremor [Unknown]
  - Chills [Unknown]
  - Dizziness [Unknown]
